FAERS Safety Report 6612726-X (Version None)
Quarter: 2010Q1

REPORT INFORMATION
  Report Type: 
  Country: None (occurrence: None)
  Receive Date: 20100223
  Receipt Date: 20100209
  Transmission Date: 20100710
  Serious: Yes (Other)
  Sender: FDA-Public Use
  Company Number: 1000008195

PATIENT
  Age: 49 Year
  Sex: Female

DRUGS (1)
  1. LEXAPRO [Suspect]
     Indication: PANIC DISORDER
     Dosage: 10 MG, ONCE, ORAL
     Route: 048
     Dates: start: 20090701, end: 20090701

REACTIONS (4)
  - CEREBRAL CYST [None]
  - GRAND MAL CONVULSION [None]
  - HALLUCINATION, VISUAL [None]
  - STRESS [None]
